FAERS Safety Report 26079479 (Version 1)
Quarter: 2025Q4

REPORT INFORMATION
  Report Type: Spontaneous
  Country: US (occurrence: US)
  Receive Date: 20251123
  Receipt Date: 20251123
  Transmission Date: 20260117
  Serious: No
  Sender: GALPHARM INTERNATIONAL
  Company Number: US-PERRIGO-25US012416

PATIENT
  Sex: Female

DRUGS (3)
  1. OPILL [Suspect]
     Active Substance: NORGESTREL
     Indication: Oral contraception
     Dosage: UNK, DAILY AT 1900
     Route: 048
     Dates: end: 20251015
  2. OPILL [Suspect]
     Active Substance: NORGESTREL
     Dosage: ONCE AT 0930
     Route: 048
     Dates: start: 20251017, end: 20251017
  3. OPILL [Suspect]
     Active Substance: NORGESTREL
     Dosage: UNK, DAILY AT 1900
     Route: 048
     Dates: start: 20251017

REACTIONS (2)
  - Product dose omission issue [Recovered/Resolved]
  - Intentional product use issue [Recovered/Resolved]

NARRATIVE: CASE EVENT DATE: 20251016
